FAERS Safety Report 4303566-5 (Version None)
Quarter: 2004Q1

REPORT INFORMATION
  Report Type: 
  Country: None (occurrence: None)
  Receive Date: 20040224
  Receipt Date: 20040224
  Transmission Date: 20041129
  Serious: No
  Sender: FDA-Public Use
  Company Number: None

PATIENT
  Age: 24 Year
  Sex: Female

DRUGS (1)
  1. GEODON [Suspect]
     Indication: BIPOLAR DISORDER
     Dosage: 180 MG DAILY ORAL
     Route: 048
     Dates: start: 20030920, end: 20031209

REACTIONS (2)
  - ANGIONEUROTIC OEDEMA [None]
  - SWELLING FACE [None]
